FAERS Safety Report 10562640 (Version 1)
Quarter: 2014Q4

REPORT INFORMATION
  Report Type: Spontaneous
  Country: US (occurrence: None)
  Receive Date: 20141103
  Receipt Date: 20141103
  Transmission Date: 20150529
  Serious: Yes (Other)
  Sender: FDA-Public Use
  Company Number: None

PATIENT
  Age: 53 Year
  Sex: Female
  Weight: 50.35 kg

DRUGS (1)
  1. OXYTROL [Suspect]
     Active Substance: OXYBUTYNIN
     Indication: HYPERTONIC BLADDER
     Dosage: 1 PATCH, EVERY 4 DAYS, TRANSDERMAL
     Route: 062
     Dates: start: 20140904, end: 20141031

REACTIONS (3)
  - Swelling face [None]
  - Lip swelling [None]
  - Eyelid oedema [None]

NARRATIVE: CASE EVENT DATE: 20141010
